FAERS Safety Report 24092738 (Version 1)
Quarter: 2024Q3

REPORT INFORMATION
  Report Type: Spontaneous
  Country: US (occurrence: US)
  Receive Date: 20240715
  Receipt Date: 20240715
  Transmission Date: 20241017
  Serious: No
  Sender: PFIZER
  Company Number: US-PFIZER INC-202400213941

PATIENT
  Sex: Female

DRUGS (2)
  1. DOXYCYCLINE [Interacting]
     Active Substance: DOXYCYCLINE\DOXYCYCLINE HYCLATE
     Dosage: UNK
  2. VIVOTIF [Interacting]
     Active Substance: SALMONELLA TYPHI TY21A LIVE ANTIGEN
     Indication: Immunisation

REACTIONS (1)
  - Drug interaction [Unknown]
